FAERS Safety Report 7266195-X (Version None)
Quarter: 2011Q1

REPORT INFORMATION
  Report Type: 
  Country: None (occurrence: None)
  Receive Date: 20110131
  Receipt Date: 20110121
  Transmission Date: 20110831
  Serious: Yes (Hospitalization)
  Sender: FDA-Public Use
  Company Number: IE-ABBOTT-11P-229-0699973-00

PATIENT
  Age: 24 Year
  Sex: Male

DRUGS (4)
  1. ADALIMUMAB [Suspect]
     Route: 058
  2. AZATHIOPRINE [Concomitant]
     Indication: CROHN'S DISEASE
  3. STEROIDS [Concomitant]
     Indication: CROHN'S DISEASE
  4. ADALIMUMAB [Suspect]
     Indication: CROHN'S DISEASE
     Dosage: INITIAL INDUCTION DOSE
     Route: 058

REACTIONS (1)
  - ANORECTAL STENOSIS [None]
